FAERS Safety Report 8835388 (Version 2)
Quarter: 2012Q4

REPORT INFORMATION
  Report Type: 
  Country: IT (occurrence: IT)
  Receive Date: 20121011
  Receipt Date: 20121012
  Transmission Date: 20130627
  Serious: Yes (Other)
  Sender: FDA-Public Use
  Company Number: IT-JNJFOC-20121004475

PATIENT
  Sex: Female

DRUGS (19)
  1. DOXORUBICIN [Suspect]
     Indication: BREAST CANCER
     Dosage: 4 cycles of AC regimen in arm C
     Route: 042
  2. DOXORUBICIN [Suspect]
     Indication: BREAST CANCER
     Dosage: 4 cycles of AT regimen in arm B
     Route: 042
  3. DOXORUBICIN [Suspect]
     Indication: BREAST CANCER
     Dosage: 4 cycles of AT regimen in arm A
     Route: 042
  4. ADRIBLASTINA [Suspect]
     Indication: BREAST CANCER
     Dosage: 4 cycles of AC regimen in arm C
     Route: 040
  5. ADRIBLASTINA [Suspect]
     Indication: BREAST CANCER
     Dosage: 4 cycles of AT regimen in arm B
     Route: 040
  6. ADRIBLASTINA [Suspect]
     Indication: BREAST CANCER
     Dosage: 4 cycles of AT regimen in arm A
     Route: 040
  7. CYCLOPHOSPHAMIDE [Suspect]
     Indication: BREAST CANCER
     Dosage: 4 cycles at 3 week intervals in regimen AC in arm C
     Route: 042
  8. CYCLOPHOSPHAMIDE [Suspect]
     Indication: BREAST CANCER
     Dosage: 4 cycles on days 1 and 8 at 4 week interval in regimen CMX in arm B
     Route: 042
  9. CYCLOPHOSPHAMIDE [Suspect]
     Indication: BREAST CANCER
     Dosage: 4 cycles on days 1 and 8 at 4 week interval in regimen CMF in arm A
     Route: 042
  10. METHOTREXATE [Suspect]
     Indication: BREAST CANCER
     Dosage: 4 cycles on days 1 and 8 at 4 weeks interval in regimen CMX in arm B
     Route: 042
  11. METHOTREXATE [Suspect]
     Indication: BREAST CANCER
     Dosage: 4 cycles on days 1 and 8 at 4 weeks interval in regimen CMF in arm A
     Route: 042
  12. FLUOROURACIL [Suspect]
     Indication: BREAST CANCER
     Dosage: 4 cycles on days 1 and 8 at 4-week interval in regimen CMF at arm A
     Route: 042
  13. CAPECITABINE [Suspect]
     Indication: BREAST CANCER
     Dosage: 4 cycles diveded in to 2 daily doses from day 1 to day 14 at 4-week interval on CMX regimen in arm B
     Route: 048
  14. CAPECITABINE [Suspect]
     Indication: BREAST CANCER
     Dosage: 4 cycles divided doses from day 1 to day 14 at 3-week interval on TX regimen in arm C
     Route: 048
  15. PACLITAXEL [Suspect]
     Indication: BREAST CANCER
     Dosage: 4 cycles infused over 3 hours given at 3-week interval in AT regimen in arm A
     Route: 042
  16. PACLITAXEL [Suspect]
     Indication: BREAST CANCER
     Dosage: 4 cycles infused over 3 hours given at 3-week interval in AT regimen in arm B
     Route: 042
  17. PACLITAXEL [Suspect]
     Indication: BREAST CANCER
     Dosage: 4 cycles infused over 1 hour on days 1 and 8 at 3-week interval in TX regimen in arm C
     Route: 042
  18. EXEMESTANE [Concomitant]
     Indication: PRODUCT USED FOR UNKNOWN INDICATION
     Route: 065
  19. LUTEINIZING HORMONE RELEASING HORMONE AGONIST [Concomitant]
     Indication: PRODUCT USED FOR UNKNOWN INDICATION
     Route: 065

REACTIONS (15)
  - Acute coronary syndrome [Unknown]
  - Atrial fibrillation [Unknown]
  - Pulmonary embolism [Unknown]
  - Neurotoxicity [Unknown]
  - Venous thrombosis [Unknown]
  - Leukopenia [Unknown]
  - Neutropenia [Unknown]
  - Thrombocytopenia [Unknown]
  - Anaemia [Unknown]
  - Hypotension [Unknown]
  - Infection [Unknown]
  - Febrile neutropenia [Unknown]
  - Gastrointestinal toxicity [Unknown]
  - Nausea [Unknown]
  - Vomiting [Unknown]
